FAERS Safety Report 9965708 (Version 1)
Quarter: 2014Q1

REPORT INFORMATION
  Report Type: Report from Study
  Country: US (occurrence: US)
  Receive Date: 20140305
  Receipt Date: 20140305
  Transmission Date: 20141002
  Serious: No
  Sender: FDA-Public Use
  Company Number: US-ABBVIE-13P-163-1123517-00

PATIENT
  Age: 81 Year
  Sex: Female

DRUGS (2)
  1. HUMIRA [Suspect]
     Indication: CROHN^S DISEASE
     Dates: start: 20130212
  2. HUMIRA [Suspect]
     Dates: start: 20130716, end: 20130716

REACTIONS (5)
  - Skin discolouration [Not Recovered/Not Resolved]
  - Emotional distress [Not Recovered/Not Resolved]
  - Local swelling [Not Recovered/Not Resolved]
  - Nervousness [Not Recovered/Not Resolved]
  - Infection [Not Recovered/Not Resolved]
